FAERS Safety Report 23980962 (Version 1)
Quarter: 2024Q2

REPORT INFORMATION
  Report Type: Spontaneous
  Country: JP (occurrence: JP)
  Receive Date: 20240617
  Receipt Date: 20240617
  Transmission Date: 20240715
  Serious: Yes (Other)
  Sender: FDA-Public Use
  Company Number: JP-DSJP-DSJ-2024-126088

PATIENT
  Sex: Female

DRUGS (5)
  1. EDOXABAN TOSYLATE [Suspect]
     Active Substance: EDOXABAN TOSYLATE
     Indication: Atrial fibrillation
     Dosage: UNK
     Route: 048
  2. TRANSAMIN [Suspect]
     Active Substance: TRANEXAMIC ACID
     Indication: Bacterial test positive
     Dosage: UNK
     Route: 048
     Dates: start: 20240607, end: 20240607
  3. TRANSAMIN [Suspect]
     Active Substance: TRANEXAMIC ACID
     Dosage: UNK
     Route: 048
     Dates: start: 20240610, end: 20240610
  4. CARBAZOCHROME SODIUM SULFONATE [Concomitant]
     Active Substance: CARBAZOCHROME SODIUM SULFONATE
     Indication: Bacterial test positive
     Dosage: UNK
     Route: 065
  5. ANTIBIOTIC PREPARATIONS [Concomitant]
     Indication: Bacterial test positive
     Dosage: UNK
     Route: 065

REACTIONS (4)
  - Haematuria [Recovering/Resolving]
  - Bacterial test positive [Unknown]
  - Abdominal pain upper [Unknown]
  - Intentional dose omission [Unknown]

NARRATIVE: CASE EVENT DATE: 20240601
